FAERS Safety Report 10267244 (Version 1)
Quarter: 2014Q2

REPORT INFORMATION
  Report Type: Spontaneous
  Country: US (occurrence: None)
  Receive Date: 20140626
  Receipt Date: 20140626
  Transmission Date: 20141212
  Serious: Yes (Hospitalization)
  Sender: FDA-Public Use
  Company Number: None

PATIENT
  Age: 76 Year
  Sex: Female

DRUGS (14)
  1. SEROQUEL [Suspect]
     Indication: INSOMNIA
     Route: 048
     Dates: start: 20130501, end: 20140522
  2. LIBRIUM [Concomitant]
  3. KLONOPIN [Concomitant]
  4. QUETIAPINE [Concomitant]
  5. LORAZEPAM [Concomitant]
  6. GLVCOLA [Concomitant]
  7. TRAZODONE [Concomitant]
  8. SINEMENT CR [Concomitant]
  9. AMILORIDE [Concomitant]
  10. LACTULOSE [Concomitant]
  11. FROVA [Concomitant]
  12. LASIX [Concomitant]
  13. SYNTHROID [Concomitant]
  14. RIFAXIMIN [Concomitant]

REACTIONS (1)
  - Parkinsonism [None]
